FAERS Safety Report 24748318 (Version 1)
Quarter: 2024Q4

REPORT INFORMATION
  Report Type: Spontaneous
  Country: PL (occurrence: PL)
  Receive Date: 20241218
  Receipt Date: 20241218
  Transmission Date: 20250115
  Serious: Yes (Other)
  Sender: ACCORD
  Company Number: PL-EMA-20120910-AUTODUP-283261

PATIENT
  Age: 64 Year
  Sex: Male

DRUGS (6)
  1. MYCOPHENOLATE MOFETIL [Suspect]
     Active Substance: MYCOPHENOLATE MOFETIL
     Indication: Dermatitis atopic
  2. AZATHIOPRINE [Suspect]
     Active Substance: AZATHIOPRINE
     Indication: Dermatitis atopic
  3. CYCLOSPORINE [Suspect]
     Active Substance: CYCLOSPORINE
     Indication: Dermatitis exfoliative generalised
     Dosage: (2.5 MG/KG, INCREASED TO 3.5 MG/KG AFTER 2 MONTHS)
  4. ACITRETIN [Concomitant]
     Active Substance: ACITRETIN
     Indication: Dermatitis atopic
  5. METHOTREXATE [Concomitant]
     Active Substance: METHOTREXATE
     Indication: Dermatitis atopic
     Dosage: SYSTEMIC
  6. CYCLOSPORINE [Suspect]
     Active Substance: CYCLOSPORINE
     Indication: Dermatitis atopic
     Dosage: 3.5 MG/KG, UNK

REACTIONS (4)
  - Gastrointestinal disorder [Unknown]
  - Lymphocytosis [Not Recovered/Not Resolved]
  - Cutaneous T-cell lymphoma refractory [Not Recovered/Not Resolved]
  - Thrombocytosis [Not Recovered/Not Resolved]
